FAERS Safety Report 9680910 (Version 1)
Quarter: 2013Q4

REPORT INFORMATION
  Report Type: Spontaneous
  Country: US (occurrence: None)
  Receive Date: 20131108
  Receipt Date: 20131108
  Transmission Date: 20140711
  Serious: Yes (Other)
  Sender: FDA-Public Use
  Company Number: None

PATIENT
  Age: 78 Year
  Sex: Male

DRUGS (8)
  1. LINAGLIPTIN [Suspect]
     Indication: TYPE 2 DIABETES MELLITUS
     Dosage: 1 PILL, QD, ORAL
     Route: 048
     Dates: start: 20131004, end: 20131020
  2. METFORMIN [Concomitant]
  3. PROSCAR [Concomitant]
  4. HYDROCHLOROTHIAZIDE [Concomitant]
  5. LEVADOPA/CARBIDOPA [Concomitant]
  6. AMATADINE [Concomitant]
  7. IBUPROFEN [Concomitant]
  8. CHLORAMBUCIL [Concomitant]

REACTIONS (5)
  - Nausea [None]
  - Abdominal pain [None]
  - Abdominal rigidity [None]
  - Pancreatitis [None]
  - Chromaturia [None]
